APPROVED DRUG PRODUCT: GALAFOLD
Active Ingredient: MIGALASTAT HYDROCHLORIDE
Strength: EQ 123MG BASE
Dosage Form/Route: CAPSULE;ORAL
Application: N208623 | Product #001
Applicant: AMICUS THERAPEUTICS US LLC
Approved: Aug 10, 2018 | RLD: Yes | RS: Yes | Type: RX

PATENTS:
Patent 9987263 | Expires: May 16, 2027
Patent 9480682 | Expires: May 16, 2027
Patent 9999618 | Expires: Apr 28, 2028
Patent 10076514 | Expires: Mar 15, 2037
Patent 9000011 | Expires: May 16, 2027
Patent 9095584 | Expires: Feb 12, 2029
Patent 9999618 | Expires: Apr 28, 2028
Patent 10251873 | Expires: May 30, 2038
Patent 10383864 | Expires: May 16, 2027
Patent 10471053 | Expires: May 30, 2038
Patent 10406143 | Expires: May 16, 2027
Patent 10525045 | Expires: Apr 28, 2028
Patent 8592362 | Expires: Feb 12, 2029
Patent 11033538 | Expires: Apr 28, 2028
Patent 10925866 | Expires: Apr 28, 2028
Patent 11642334 | Expires: Feb 20, 2039
Patent 11633388 | Expires: Mar 25, 2039
Patent 12280042 | Expires: May 30, 2038
Patent 12042490 | Expires: May 30, 2038
Patent 12042489 | Expires: May 30, 2038
Patent 11903938 | Expires: Aug 17, 2038
Patent 11357761 | Expires: May 30, 2038
Patent 11357762 | Expires: May 30, 2038
Patent 11357763 | Expires: May 30, 2038
Patent 11357784 | Expires: Feb 6, 2039
Patent 11458128 | Expires: May 30, 2038
Patent 10813921 | Expires: Feb 12, 2029
Patent 11666564 | Expires: May 30, 2038
Patent 12109205 | Expires: May 30, 2038
Patent 10857141 | Expires: May 30, 2038
Patent 10849890 | Expires: May 30, 2038
Patent 10849889 | Expires: May 30, 2038
Patent 10857142 | Expires: May 30, 2038
Patent 10874657 | Expires: May 30, 2038
Patent 10874655 | Expires: May 30, 2038
Patent 10874656 | Expires: May 30, 2038
Patent RE48608 | Expires: Oct 20, 2031
Patent 11389437 | Expires: May 30, 2038
Patent 11389436 | Expires: May 30, 2038
Patent 10792278 | Expires: May 30, 2038
Patent 10792279 | Expires: May 30, 2038
Patent 10799491 | Expires: May 30, 2038
Patent 10806727 | Expires: May 30, 2038
Patent 11833164 | Expires: Jan 11, 2042
Patent 11813255 | Expires: May 30, 2038
Patent 11241422 | Expires: May 16, 2027
Patent 11234972 | Expires: Mar 15, 2037
Patent 11278538 | Expires: May 30, 2038
Patent 11278537 | Expires: May 30, 2038
Patent 11278536 | Expires: May 30, 2038
Patent 11278539 | Expires: May 30, 2038
Patent 11278540 | Expires: May 30, 2038
Patent 11304940 | Expires: May 30, 2038
Patent 11612594 | Expires: May 30, 2038
Patent 12042488 | Expires: May 30, 2038
Patent 11357764 | Expires: May 30, 2038
Patent 11376244 | Expires: May 30, 2038
Patent 11612593 | Expires: May 30, 2038
Patent 11622962 | Expires: Mar 17, 2039
Patent 11357765 | Expires: May 30, 2038
Patent 11426396 | Expires: May 30, 2038
Patent 11633387 | Expires: May 30, 2038
Patent 11826360 | Expires: Feb 16, 2039
Patent 11786516 | Expires: May 30, 2038